FAERS Safety Report 10087290 (Version 1)
Quarter: 2014Q2

REPORT INFORMATION
  Report Type: Spontaneous
  Country: US (occurrence: US)
  Receive Date: 20140418
  Receipt Date: 20140418
  Transmission Date: 20141212
  Serious: Yes (Hospitalization, Other)
  Sender: FDA-Public Use
  Company Number: US-RB-066071-14

PATIENT
  Age: 23 Year
  Sex: Female
  Weight: 51 kg

DRUGS (8)
  1. SUBOXONE FILM [Suspect]
     Indication: DRUG DEPENDENCE
     Dosage: SUBOXONE FILM
     Route: 060
     Dates: end: 201208
  2. SUBOXONE TABLET [Suspect]
     Indication: PRODUCT USED FOR UNKNOWN INDICATION
     Dosage: DOSING DETAILS UNKNOWN
     Route: 065
     Dates: start: 200904
  3. SUBOXONE TABLET [Suspect]
     Dosage: PATERNAL EXPOSURE DOSING UNKNOWN
     Route: 064
  4. OPIATES [Suspect]
     Indication: PRODUCT USED FOR UNKNOWN INDICATION
     Dosage: UNKNOWN DOSING DETAILS; STOPPED DURING PREGNANCY
     Route: 065
     Dates: start: 2001, end: 2010
  5. NICOTINE [Concomitant]
     Indication: PRODUCT USED FOR UNKNOWN INDICATION
     Dosage: 10 CIGARETTES A DAY
     Route: 055
     Dates: start: 2001
  6. PRENATAL VITAMINS [Concomitant]
     Indication: PREGNANCY
     Dosage: 1 A DAY (UNKNOWN STRENGTH AND FORMULATION)
     Route: 065
     Dates: start: 201004, end: 201009
  7. IRON SUPPLEMENT [Concomitant]
     Indication: ANAEMIA
     Dosage: TAKING 1 DAILY
     Route: 065
     Dates: start: 201004, end: 201009
  8. TYLENOL [Concomitant]
     Indication: BACK PAIN
     Route: 065
     Dates: start: 201007, end: 201010

REACTIONS (11)
  - Drug abuse [Recovered/Resolved]
  - Maternal exposure during pregnancy [Recovered/Resolved]
  - Exposure via father [Recovered/Resolved]
  - Vaginal haemorrhage [Recovered/Resolved]
  - Foetal death [Recovered/Resolved]
  - Anaemia of pregnancy [Recovered/Resolved]
  - Back pain [Recovered/Resolved]
  - Gestational hypertension [Recovered/Resolved]
  - Amniotic fluid volume decreased [Recovered/Resolved]
  - Premature labour [Recovered/Resolved]
  - Premature delivery [Recovered/Resolved]
